FAERS Safety Report 12433759 (Version 2)
Quarter: 2016Q2

REPORT INFORMATION
  Report Type: Spontaneous
  Country: JP (occurrence: JP)
  Receive Date: 20160603
  Receipt Date: 20160615
  Transmission Date: 20160815
  Serious: Yes (Hospitalization, Other)
  Sender: FDA-Public Use
  Company Number: JP-MDT-ADR-2016-01000

PATIENT
  Age: 72 Year
  Sex: Male

DRUGS (1)
  1. GABALON 0.05% [Suspect]
     Active Substance: BACLOFEN
     Route: 037
     Dates: start: 20150401, end: 20160606

REACTIONS (5)
  - Wound infection [Unknown]
  - Implant site infection [Unknown]
  - Wound haemorrhage [Unknown]
  - Implant site extravasation [Unknown]
  - Wound secretion [Unknown]

NARRATIVE: CASE EVENT DATE: 20150512
